FAERS Safety Report 23742826 (Version 3)
Quarter: 2024Q2

REPORT INFORMATION
  Report Type: Spontaneous
  Country: US (occurrence: US)
  Receive Date: 20240415
  Receipt Date: 20240426
  Transmission Date: 20240715
  Serious: No
  Sender: FDA-Public Use
  Company Number: US-BRISTOL-MYERS SQUIBB COMPANY-2024-057998

PATIENT
  Age: 72 Year
  Sex: Female
  Weight: 83.91 kg

DRUGS (16)
  1. REVLIMID [Suspect]
     Active Substance: LENALIDOMIDE
     Indication: Plasma cell myeloma
     Route: 048
     Dates: start: 20240321
  2. DARZALEX FASPRO [Concomitant]
     Active Substance: DARATUMUMAB\HYALURONIDASE-FIHJ
     Indication: Plasma cell myeloma
  3. VELCADE [Concomitant]
     Active Substance: BORTEZOMIB
     Indication: Plasma cell myeloma
  4. LISINOPRIL ACTAVIS [LISINOPRIL] [Concomitant]
     Indication: Hypertension
  5. CARVEDILOL [Concomitant]
     Active Substance: CARVEDILOL
     Indication: Hypertension
     Dosage: 12.5MG TABLETS
  6. CARVEDILOL [Concomitant]
     Active Substance: CARVEDILOL
  7. ACYCLOVIR [Concomitant]
     Active Substance: ACYCLOVIR
     Indication: Herpes simplex
  8. ONDANSETRON HYDROCHLORIDE [Concomitant]
     Active Substance: ONDANSETRON HYDROCHLORIDE
     Indication: Nausea
  9. ASPIRIN [Concomitant]
     Active Substance: ASPIRIN
     Indication: Product used for unknown indication
     Dosage: 81MG EC LOW DOSE TABLETS
  10. CALCIUM [Concomitant]
     Active Substance: CALCIUM
     Indication: Product used for unknown indication
  11. TYLENOL [Concomitant]
     Active Substance: ACETAMINOPHEN
     Indication: Product used for unknown indication
  12. VITAMIN D NOS [Concomitant]
     Active Substance: VITAMIN D NOS
     Indication: Product used for unknown indication
     Dosage: I,OOOIU H/PTNCY ?CAPSULES
  13. FAMOTIDINE [Concomitant]
     Active Substance: FAMOTIDINE
     Indication: Gastrooesophageal reflux disease
  14. VITAMINS NOS [Concomitant]
     Active Substance: VITAMINS
     Indication: Product used for unknown indication
     Dosage: 50+ TABLETS ?125
  15. IRON [Concomitant]
     Active Substance: IRON
     Indication: Product used for unknown indication
  16. DEXAMETHASONE [Concomitant]
     Active Substance: DEXAMETHASONE
     Indication: Plasma cell myeloma

REACTIONS (5)
  - Hypertension [Unknown]
  - Paraesthesia [Unknown]
  - Dyspnoea exertional [Unknown]
  - Pharyngeal swelling [Unknown]
  - Dyspnoea [Unknown]

NARRATIVE: CASE EVENT DATE: 20240301
